FAERS Safety Report 8220502-X (Version None)
Quarter: 2012Q1

REPORT INFORMATION
  Report Type: 
  Country: None (occurrence: None)
  Receive Date: 20120313
  Receipt Date: 20120229
  Transmission Date: 20120608
  Serious: Yes (Congenital Anomaly)
  Sender: FDA-Public Use
  Company Number: A0968873A

PATIENT
  Sex: Male

DRUGS (1)
  1. VALACYCLOVIR HYDROCHLORIDE [Suspect]
     Indication: GENITAL HERPES
     Dosage: 500 MG / TWICE PER DAY / TRANSPLACEN
     Route: 064

REACTIONS (20)
  - CONGENITAL HERPES SIMPLEX INFECTION [None]
  - AMNIOCENTESIS ABNORMAL [None]
  - MICROCEPHALY [None]
  - THROMBOCYTOPENIA [None]
  - ASPARTATE AMINOTRANSFERASE INCREASED [None]
  - RETINAL SCAR [None]
  - HAEMORRHAGE [None]
  - SCAR [None]
  - HEPATOSPLENOMEGALY [None]
  - FOETAL GROWTH RESTRICTION [None]
  - PREMATURE LABOUR [None]
  - SKIN EROSION [None]
  - MATERNAL DRUGS AFFECTING FOETUS [None]
  - JOINT CONTRACTURE [None]
  - MECONIUM PERITONITIS [None]
  - APLASIA [None]
  - JAUNDICE NEONATAL [None]
  - CALCINOSIS [None]
  - NERVOUS SYSTEM DISORDER [None]
  - CONGENITAL ANOMALY [None]
